FAERS Safety Report 23419721 (Version 1)
Quarter: 2024Q1

REPORT INFORMATION
  Report Type: Spontaneous
  Country: DE (occurrence: DE)
  Receive Date: 20240119
  Receipt Date: 20240119
  Transmission Date: 20240410
  Serious: Yes (Life-Threatening, Other)
  Sender: FDA-Public Use
  Company Number: None

PATIENT
  Age: 65 Year
  Sex: Male
  Weight: 70 kg

DRUGS (3)
  1. ABIRATERONE [Suspect]
     Active Substance: ABIRATERONE
     Indication: Bladder cancer
     Dosage: 1X2; ORAL BIS NORMALISIERUNG ABGESETZT, DANN WIRD WEITERGENOMMEN (1X2; ORALLY DISCONTINUED UNTIL NOR
     Route: 048
  2. RAMIPRIL [Concomitant]
     Active Substance: RAMIPRIL
     Dosage: 1-0-0, SEIT 3 JAHREN (1-0-0, FOR 3 YEARS)
     Route: 048
  3. Prednisolon 5mg GALEN [Concomitant]
     Indication: Product used for unknown indication
     Dosage: SEIT 3 JAHREN; 1-0-0 (FOR 3 YEARS; 1-0-0)
     Route: 048

REACTIONS (3)
  - Hypertensive crisis [Recovering/Resolving]
  - Product substitution issue [Unknown]
  - Product use in unapproved indication [Unknown]

NARRATIVE: CASE EVENT DATE: 20231101
